FAERS Safety Report 16837652 (Version 1)
Quarter: 2019Q3

REPORT INFORMATION
  Report Type: Spontaneous
  Country: JP (occurrence: JP)
  Receive Date: 20190923
  Receipt Date: 20190923
  Transmission Date: 20191005
  Serious: Yes (Hospitalization, Other)
  Sender: FDA-Public Use
  Company Number: JP-ROCHE-2415942

PATIENT
  Age: 85 Year
  Sex: Female

DRUGS (4)
  1. XOLAIR [Suspect]
     Active Substance: OMALIZUMAB
     Indication: ASTHMA
     Dosage: 450 MG, UNK
     Route: 058
  2. PREDNISOLONE. [Concomitant]
     Active Substance: PREDNISOLONE
     Indication: ASTHMA
     Dosage: 5 MG, UNK
     Route: 048
     Dates: end: 20190801
  3. PREDNISOLONE. [Concomitant]
     Active Substance: PREDNISOLONE
     Dosage: 20 MG, UNK
     Route: 048
     Dates: start: 20190801, end: 20190802
  4. PREDNISOLONE. [Concomitant]
     Active Substance: PREDNISOLONE
     Dosage: UNK
     Route: 048
     Dates: start: 20190802

REACTIONS (8)
  - Asthma [Not Recovered/Not Resolved]
  - Nasopharyngitis [Unknown]
  - Pneumonia [Not Recovered/Not Resolved]
  - Productive cough [Unknown]
  - Wheezing [Unknown]
  - Cataract [Unknown]
  - Chest discomfort [Unknown]
  - Rhinorrhoea [Unknown]

NARRATIVE: CASE EVENT DATE: 20190725
